FAERS Safety Report 6711863-9 (Version None)
Quarter: 2010Q2

REPORT INFORMATION
  Report Type: 
  Country: None (occurrence: None)
  Receive Date: 20100505
  Receipt Date: 20100423
  Transmission Date: 20101027
  Serious: No
  Sender: FDA-Public Use
  Company Number: US-B.I. PHARMACEUTICALS,INC./RIDGEFIELD-2010-BP-04714BP

PATIENT
  Sex: Male

DRUGS (4)
  1. FLOMAX [Suspect]
     Indication: POLLAKIURIA
     Dosage: 0.8 MG
     Route: 048
     Dates: start: 20100420
  2. LOTREL [Concomitant]
     Indication: HYPERTENSION
  3. ANDROGEL [Concomitant]
     Indication: HORMONE REPLACEMENT THERAPY
  4. AVODART [Concomitant]
     Indication: POLLAKIURIA
     Dates: start: 20100422

REACTIONS (2)
  - NOCTURIA [None]
  - POLLAKIURIA [None]
